FAERS Safety Report 24795049 (Version 1)
Quarter: 2024Q4

REPORT INFORMATION
  Report Type: Other
  Country: AU (occurrence: AU)
  Receive Date: 20241231
  Receipt Date: 20241231
  Transmission Date: 20250114
  Serious: Yes (Other)
  Sender: B BRAUN
  Company Number: AU-B.Braun Medical Inc.-2168121

PATIENT
  Age: 26 Year
  Sex: Female

DRUGS (2)
  1. CEFTAZIDIME [Suspect]
     Active Substance: CEFTAZIDIME
  2. VANCOMYCIN [Suspect]
     Active Substance: VANCOMYCIN

REACTIONS (1)
  - Drug reaction with eosinophilia and systemic symptoms [Unknown]
